FAERS Safety Report 7054698-2 (Version None)
Quarter: 2010Q4

REPORT INFORMATION
  Report Type: 
  Country: None (occurrence: None)
  Receive Date: 20101020
  Receipt Date: 20101013
  Transmission Date: 20110411
  Serious: Yes (Other)
  Sender: FDA-Public Use
  Company Number: DE-B.I. PHARMACEUTICALS,INC./RIDGEFIELD-2010-DE-05360DE

PATIENT
  Sex: Male
  Weight: 70 kg

DRUGS (3)
  1. PRAMIPEXOLE DIHYDROCHLORIDE [Suspect]
     Indication: PARKINSON'S DISEASE
     Dosage: 1.4 MG
     Route: 048
     Dates: start: 20070101
  2. SORMODREN [Concomitant]
     Indication: PARKINSON'S DISEASE
     Dosage: 20 MG
     Route: 048
     Dates: start: 20090501
  3. AZILECT [Concomitant]
     Indication: PARKINSON'S DISEASE
     Dosage: 1 MG
     Route: 048
     Dates: start: 20080101

REACTIONS (2)
  - IMPULSE-CONTROL DISORDER [None]
  - PATHOLOGICAL GAMBLING [None]
